FAERS Safety Report 5097366-9 (Version None)
Quarter: 2006Q3

REPORT INFORMATION
  Report Type: 
  Country: None (occurrence: None)
  Receive Date: 20060906
  Receipt Date: 20060828
  Transmission Date: 20061208
  Serious: Yes (Other)
  Sender: FDA-Public Use
  Company Number: US-ROCHE-461267

PATIENT
  Age: 46 Year
  Sex: Female

DRUGS (6)
  1. PEGASYS [Suspect]
     Dosage: STRENGTH REPORTED AS 180 MCG/0.5 ML.
     Route: 058
     Dates: start: 20060719
  2. COPEGUS [Suspect]
     Route: 048
     Dates: start: 20060719
  3. XANAX [Concomitant]
     Indication: ANXIETY
     Route: 048
     Dates: start: 20040615
  4. SEROQUEL [Concomitant]
     Indication: SLEEP DISORDER THERAPY
     Route: 048
     Dates: start: 20040615
  5. ZOLOFT [Concomitant]
     Indication: DEPRESSION
     Dosage: AT BEDTIME.
  6. PERCOCET [Concomitant]
     Indication: BACK PAIN

REACTIONS (6)
  - DIARRHOEA [None]
  - DIZZINESS [None]
  - FALL [None]
  - HEAD INJURY [None]
  - LOSS OF CONSCIOUSNESS [None]
  - NAUSEA [None]
